FAERS Safety Report 24172571 (Version 1)
Quarter: 2024Q3

REPORT INFORMATION
  Report Type: Spontaneous
  Country: NL (occurrence: NL)
  Receive Date: 20240805
  Receipt Date: 20240805
  Transmission Date: 20241017
  Serious: Yes (Other)
  Sender: PERRIGO
  Company Number: NL-Daleco-2024-NL-000059

PATIENT
  Age: 52 Year
  Sex: Female

DRUGS (14)
  1. ACETAMINOPHEN [Interacting]
     Active Substance: ACETAMINOPHEN
     Indication: Pain
     Dosage: 3 TIMES DAILY 2 PILLS
     Route: 065
  2. ZOLPIDEM [Interacting]
     Active Substance: ZOLPIDEM TARTRATE
     Dosage: WHEN NEEDED
  3. LORAZEPAM [Interacting]
     Active Substance: LORAZEPAM
     Indication: Restlessness
     Dosage: WHEN NEEDED
  4. LORAZEPAM [Interacting]
     Active Substance: LORAZEPAM
     Indication: Mental disorder
  5. LORAZEPAM [Interacting]
     Active Substance: LORAZEPAM
     Indication: Pain
  6. FOSFOR [Concomitant]
     Indication: Asthma
     Dosage: PUFFS
  7. QUETIAPINE [Suspect]
     Active Substance: QUETIAPINE
     Dosage: S^AVONDS VOOR SLAPEN
  8. PANTOPRAZOLE [Concomitant]
     Active Substance: PANTOPRAZOLE
  9. MESALAMINE [Concomitant]
     Active Substance: MESALAMINE
     Indication: Colitis
  10. AMISULPRIDE [Suspect]
     Active Substance: AMISULPRIDE
     Dosage: ONE AND A HALF YEAR, TOGETHER WITH TRACYDAL
  11. TRANYLCYPROMINE SULFATE [Suspect]
     Active Substance: TRANYLCYPROMINE SULFATE
     Indication: Depression
  12. TRANYLCYPROMINE SULFATE [Suspect]
     Active Substance: TRANYLCYPROMINE SULFATE
     Dosage: SINCE ONE AND A HALF YEAR; AT THE MOMENT I AM STILL TAKING TRACYDAL 30MG. I REDUCED THIS MYSELF FROM
  13. FLUTICASONE PROPIONATE [Interacting]
     Active Substance: FLUTICASONE PROPIONATE
     Indication: Hypersensitivity
  14. EUTHYROX [Concomitant]
     Active Substance: LEVOTHYROXINE SODIUM

REACTIONS (24)
  - Epilepsy [Unknown]
  - Restlessness [Unknown]
  - Restless legs syndrome [Recovered/Resolved]
  - Poor quality sleep [Not Recovered/Not Resolved]
  - Malaise [Unknown]
  - Depressed mood [Unknown]
  - Feeling abnormal [Unknown]
  - Panic attack [Unknown]
  - Irritability [Not Recovered/Not Resolved]
  - Mental fatigue [Unknown]
  - Confusional state [Not Recovered/Not Resolved]
  - Potentiating drug interaction [Unknown]
  - Eye pain [Unknown]
  - Back pain [Unknown]
  - Chills [Unknown]
  - Tongue discomfort [Unknown]
  - Insomnia [Not Recovered/Not Resolved]
  - Feeling of body temperature change [Unknown]
  - Dyspnoea [Unknown]
  - Chest pain [Unknown]
  - Contraindicated product administered [Unknown]
  - Throat tightness [Unknown]
  - Intentional product use issue [Not Recovered/Not Resolved]
  - Amnesia [Not Recovered/Not Resolved]

NARRATIVE: CASE EVENT DATE: 20240523
